FAERS Safety Report 5127607-0 (Version None)
Quarter: 2006Q4

REPORT INFORMATION
  Report Type: 
  Country: None (occurrence: None)
  Receive Date: 20061016
  Receipt Date: 20061005
  Transmission Date: 20070319
  Serious: Yes (Hospitalization, Other)
  Sender: FDA-Public Use
  Company Number: US-BRISTOL-MYERS SQUIBB COMPANY-13532338

PATIENT
  Age: 75 Year
  Sex: Female

DRUGS (6)
  1. PACLITAXEL [Suspect]
     Indication: INFLAMMATORY CARCINOMA OF THE BREAST
     Route: 042
     Dates: start: 20050919, end: 20051205
  2. LAPATINIB [Suspect]
     Indication: INFLAMMATORY CARCINOMA OF THE BREAST
     Route: 048
     Dates: start: 20050902, end: 20051205
  3. TRIAMTERENE AND HYDROCHLOROTHIAZIDE [Concomitant]
  4. ATENOLOL [Concomitant]
  5. LISINOPRIL [Concomitant]
  6. AMLODIPINE [Concomitant]

REACTIONS (2)
  - EJECTION FRACTION DECREASED [None]
  - HYPOTENSION [None]
